FAERS Safety Report 7512392-5 (Version None)
Quarter: 2011Q2

REPORT INFORMATION
  Report Type: 
  Country: None (occurrence: None)
  Receive Date: 20110531
  Receipt Date: 20110524
  Transmission Date: 20111010
  Serious: Yes (Other)
  Sender: FDA-Public Use
  Company Number: ES-ABBOTT-11P-144-0727932-00

PATIENT
  Age: 75 Year
  Sex: Male

DRUGS (3)
  1. HUMIRA [Suspect]
     Indication: CROHN'S DISEASE
     Route: 058
     Dates: start: 20100101, end: 20110520
  2. ANTIHIPERTENSIVE DRUG (NOT SPECIFIED) [Concomitant]
     Indication: HYPERTENSION
  3. ANTIDEPRESSANTS [Concomitant]
     Indication: DEPRESSION

REACTIONS (4)
  - FOCAL SEGMENTAL GLOMERULOSCLEROSIS [None]
  - MESANGIOPROLIFERATIVE GLOMERULONEPHRITIS [None]
  - OEDEMA [None]
  - NEPHROTIC SYNDROME [None]
